FAERS Safety Report 22140116 (Version 1)
Quarter: 2023Q1

REPORT INFORMATION
  Report Type: Other
  Country: GB (occurrence: GB)
  Receive Date: 20230327
  Receipt Date: 20230327
  Transmission Date: 20230418
  Serious: Yes (Other)
  Sender: FDA-Public Use
  Company Number: GB-CELLTRION INC.-2023GB006318

PATIENT

DRUGS (9)
  1. RITUXIMAB [Suspect]
     Active Substance: RITUXIMAB
     Indication: Follicular lymphoma
     Dosage: RITUXIMAB MAINTENANCE STOPPED AFTER 12 MONTHS (6 DOSES) DUE TO PROGRESSIVE DISEASE (POD
     Dates: start: 20160301, end: 20170701
  2. CYCLOPHOSPHAMIDE [Suspect]
     Active Substance: CYCLOPHOSPHAMIDE
     Indication: Follicular lymphoma
     Dosage: ACHIEVED PR - RESIDUAL DISEASE AFTER 6 CYCLES OF R-CHOP
     Dates: start: 20160301, end: 20170701
  3. DOXORUBICIN HYDROCHLORIDE [Suspect]
     Active Substance: DOXORUBICIN HYDROCHLORIDE
     Indication: Follicular lymphoma
     Dosage: ACHIEVED PR - RESIDUAL DISEASE AFTER 6 CYCLES OF R-CHOP
     Dates: start: 20160301, end: 20170701
  4. PREDNISONE [Suspect]
     Active Substance: PREDNISONE
     Indication: Follicular lymphoma
     Dosage: ACHIEVED PR - RESIDUAL DISEASE AFTER 6 CYCLES OF R-CHOP
     Dates: start: 20160301, end: 20170701
  5. VINCRISTINE [Suspect]
     Active Substance: VINCRISTINE
     Indication: Follicular lymphoma
     Dosage: ACHIEVED PR - RESIDUAL DISEASE AFTER 6 CYCLES OF R-CHOP
     Dates: start: 20160301, end: 20170701
  6. OBINUTUZUMAB [Suspect]
     Active Substance: OBINUTUZUMAB
     Indication: Follicular lymphoma
     Dosage: RECEIVED 4 CYCLES; COMPLETE REMISSION AFTER 4 CYCLES OBINUTUZUMAB AND BENDAMUSTINE.
     Dates: start: 20180201, end: 20180501
  7. BENDAMUSTINE [Suspect]
     Active Substance: BENDAMUSTINE
     Indication: Follicular lymphoma
     Dosage: RECEIVED 4 CYCLES; COMPLETE REMISSION AFTER 4 CYCLES OBINUTUZUMAB AND BENDAMUSTINE.
     Dates: start: 20180201, end: 20180501
  8. GLOFITAMAB [Suspect]
     Active Substance: GLOFITAMAB
     Indication: Follicular lymphoma
     Dosage: ACHIEVED GOOD REMISSION. RESTARTED TRIAL TREATMENT AFTER APPARENT PROGRESSION AND ACHIEVED CMR AFTER
     Dates: start: 20190912, end: 20201101
  9. ATEZOLIZUMAB [Suspect]
     Active Substance: ATEZOLIZUMAB
     Indication: Follicular lymphoma
     Dosage: ACHIEVED GOOD REMISSION. RESTARTED TRIAL TREATMENT AFTER APPARENT PROGRESSION AND ACHIEVED CMR AFTER
     Dates: start: 20190912, end: 20201101

REACTIONS (2)
  - Disease progression [Unknown]
  - Drug ineffective [Unknown]
